FAERS Safety Report 8328944-9 (Version None)
Quarter: 2012Q2

REPORT INFORMATION
  Report Type: 
  Country: None (occurrence: None)
  Receive Date: 20120502
  Receipt Date: 20101005
  Transmission Date: 20120825
  Serious: No
  Sender: FDA-Public Use
  Company Number: US-TEVA-2010005272

PATIENT
  Age: 37 Year
  Sex: Male
  Weight: 70.37 kg

DRUGS (1)
  1. NUVIGIL [Suspect]
     Route: 048
     Dates: start: 20100210

REACTIONS (1)
  - MUSCLE SPASMS [None]
